FAERS Safety Report 7391563-5 (Version None)
Quarter: 2011Q2

REPORT INFORMATION
  Report Type: 
  Country: None (occurrence: None)
  Receive Date: 20110404
  Receipt Date: 20110321
  Transmission Date: 20111010
  Serious: Yes (Other)
  Sender: FDA-Public Use
  Company Number: PHHY2011FR12828

PATIENT
  Sex: Male
  Weight: 55 kg

DRUGS (2)
  1. RASILEZ [Suspect]
     Indication: HYPERTENSION
     Dosage: UNK
     Route: 048
     Dates: start: 20101217, end: 20110114
  2. AMLODIPINE [Concomitant]
     Dosage: UNK
     Dates: start: 20110114

REACTIONS (2)
  - RENAL FAILURE [None]
  - HYPERCREATINAEMIA [None]
